FAERS Safety Report 9104271 (Version 1)
Quarter: 2013Q1

REPORT INFORMATION
  Report Type: Spontaneous
  Country: FR (occurrence: FR)
  Receive Date: 20130220
  Receipt Date: 20130220
  Transmission Date: 20140127
  Serious: Yes (Hospitalization)
  Sender: FDA-Public Use
  Company Number: FR-ASTRAZENECA-2013SE10375

PATIENT
  Age: 22195 Day
  Sex: Female

DRUGS (9)
  1. XEROQUEL [Suspect]
     Indication: SCHIZOAFFECTIVE DISORDER
     Route: 048
  2. XEROQUEL [Suspect]
     Indication: SCHIZOAFFECTIVE DISORDER
     Dosage: UNKNOWN QUANTITY OF XEROQUEL
     Route: 048
     Dates: start: 20130120, end: 20130120
  3. XEROQUEL [Suspect]
     Indication: SCHIZOAFFECTIVE DISORDER
     Route: 048
     Dates: start: 20130125
  4. NOCTAMIDE [Suspect]
     Route: 048
  5. NOCTAMIDE [Suspect]
     Dosage: 30 TABLETS
     Route: 048
     Dates: start: 20130120, end: 20130120
  6. TEMESTA [Concomitant]
  7. TEMESTA [Concomitant]
     Dates: start: 20130122
  8. LOXAPAC [Concomitant]
  9. THERALENE [Concomitant]

REACTIONS (6)
  - Inflammatory marker increased [Recovered/Resolved]
  - Hypoxia [Recovered/Resolved]
  - Supraventricular extrasystoles [Recovered/Resolved]
  - Pyrexia [Recovered/Resolved]
  - Sinus tachycardia [Recovered/Resolved]
  - Intentional drug misuse [Recovered/Resolved]
